FAERS Safety Report 9619310 (Version 2)
Quarter: 2014Q2

REPORT INFORMATION
  Report Type: Spontaneous
  Country: US (occurrence: US)
  Receive Date: 20131014
  Receipt Date: 20140430
  Transmission Date: 20141212
  Serious: Yes (Other)
  Sender: FDA-Public Use
  Company Number: US-BAYER-2013-123396

PATIENT
  Age: 47 Year
  Sex: Female

DRUGS (2)
  1. MIRENA [Suspect]
     Indication: MENORRHAGIA
     Dosage: 20 MCG/24HR, CONT
     Route: 015
     Dates: start: 2007
  2. MIRENA [Suspect]
     Indication: MENORRHAGIA
     Dosage: 20 MCG/24HR, CONT
     Route: 015
     Dates: start: 20131009

REACTIONS (6)
  - Device dislocation [Not Recovered/Not Resolved]
  - Treatment noncompliance [None]
  - Device misuse [None]
  - Device difficult to use [None]
  - Device use error [Not Recovered/Not Resolved]
  - Abdominal pain lower [Not Recovered/Not Resolved]
